FAERS Safety Report 18633590 (Version 1)
Quarter: 2020Q4

REPORT INFORMATION
  Report Type: Spontaneous
  Country: US (occurrence: US)
  Receive Date: 20201218
  Receipt Date: 20201218
  Transmission Date: 20210114
  Serious: Yes (Hospitalization, Disabling)
  Sender: FDA-Public Use
  Company Number: None

PATIENT
  Sex: Male
  Weight: 80.4 kg

DRUGS (2)
  1. GEMCITABINE HYDROCHLORIDE. [Suspect]
     Active Substance: GEMCITABINE HYDROCHLORIDE
  2. PACLITAXEL PROTEIN-BOUND PARTICLES (ALBUMIN-BOUND) [Concomitant]
     Active Substance: PACLITAXEL

REACTIONS (12)
  - Pleural effusion [None]
  - Hepatic cancer metastatic [None]
  - Dyspnoea exertional [None]
  - Oesophageal cancer metastatic [None]
  - Jaundice [None]
  - Metastatic lymphoma [None]
  - Atelectasis [None]
  - Lymphadenopathy [None]
  - Therapy cessation [None]
  - Hospice care [None]
  - Pulmonary infarction [None]
  - Pancreatic carcinoma metastatic [None]

NARRATIVE: CASE EVENT DATE: 20201211
